FAERS Safety Report 20233058 (Version 10)
Quarter: 2022Q4

REPORT INFORMATION
  Report Type: Spontaneous
  Country: CA (occurrence: CA)
  Receive Date: 20211227
  Receipt Date: 20221230
  Transmission Date: 20230113
  Serious: Yes (Other)
  Sender: FDA-Public Use
  Company Number: CA-PFIZER INC-2020417062

PATIENT
  Age: 30 Year
  Sex: Female
  Weight: 46 kg

DRUGS (27)
  1. RUXIENCE [Suspect]
     Active Substance: RITUXIMAB-PVVR
     Indication: Dermatomyositis
     Dosage: 1000 MG (ON DAY 1 AND DAY 15)
     Route: 042
     Dates: start: 20201126, end: 20201126
  2. RUXIENCE [Suspect]
     Active Substance: RITUXIMAB-PVVR
     Dosage: 1000 MG (ON DAY 1 AND DAY 15)
     Route: 042
     Dates: start: 20201126, end: 20201209
  3. RUXIENCE [Suspect]
     Active Substance: RITUXIMAB-PVVR
     Dosage: 1000 MG (ON DAY 1 AND DAY 15)
     Route: 042
     Dates: start: 20201209, end: 20201209
  4. RUXIENCE [Suspect]
     Active Substance: RITUXIMAB-PVVR
     Dosage: 1000 MG (ON DAY 1 AND DAY 15)
     Route: 042
     Dates: start: 20201126, end: 20201209
  5. RUXIENCE [Suspect]
     Active Substance: RITUXIMAB-PVVR
     Dosage: 1000 MG (ON DAY 1 AND DAY 15)
     Route: 042
     Dates: start: 20210526, end: 20210526
  6. RUXIENCE [Suspect]
     Active Substance: RITUXIMAB-PVVR
     Dosage: 1000 MG (ON DAY 1 AND DAY 15)
     Route: 042
     Dates: start: 20210526, end: 20210609
  7. RUXIENCE [Suspect]
     Active Substance: RITUXIMAB-PVVR
     Dosage: 1000 MG (ON DAY 1 AND DAY 15)
     Route: 042
     Dates: start: 20210609, end: 20210609
  8. RUXIENCE [Suspect]
     Active Substance: RITUXIMAB-PVVR
     Dosage: 1000 MG (ON DAY 1 AND DAY 15)
     Route: 042
     Dates: start: 20210526, end: 20210609
  9. RUXIENCE [Suspect]
     Active Substance: RITUXIMAB-PVVR
     Dosage: 1000 MG (ON DAY 1 AND DAY 15)
     Route: 042
     Dates: start: 20211203, end: 20220211
  10. RUXIENCE [Suspect]
     Active Substance: RITUXIMAB-PVVR
     Dosage: 1000 MG (ON DAY 1 AND DAY 15)
     Route: 042
     Dates: start: 20220211
  11. RUXIENCE [Suspect]
     Active Substance: RITUXIMAB-PVVR
     Dosage: 1000 MG (ON DAY 1 AND DAY 15)
     Route: 042
     Dates: start: 20211203, end: 20220211
  12. RUXIENCE [Suspect]
     Active Substance: RITUXIMAB-PVVR
     Dosage: 500 MG, DAY 1 AND DAY 15
     Route: 042
     Dates: start: 20220713, end: 20220727
  13. RUXIENCE [Suspect]
     Active Substance: RITUXIMAB-PVVR
     Dosage: 500 MG, DAY 1 AND DAY 15
     Route: 042
     Dates: start: 20220727
  14. RUXIENCE [Suspect]
     Active Substance: RITUXIMAB-PVVR
     Dosage: 500 MG, DAY 1 AND DAY 15
     Route: 042
     Dates: start: 20221208
  15. RUXIENCE [Suspect]
     Active Substance: RITUXIMAB-PVVR
     Dosage: 500 MG, DAY 1 AND DAY 15
     Route: 042
     Dates: start: 20221208, end: 20221223
  16. RUXIENCE [Suspect]
     Active Substance: RITUXIMAB-PVVR
     Dosage: 500 MG, DAY 1 AND DAY 15
     Route: 042
     Dates: start: 20221223
  17. ACETAMINOPHEN [Concomitant]
     Active Substance: ACETAMINOPHEN
     Indication: Premedication
     Dosage: 650 MG
     Dates: start: 20210609, end: 20210609
  18. ACETAMINOPHEN [Concomitant]
     Active Substance: ACETAMINOPHEN
     Dosage: 650 MG
     Dates: start: 20211203, end: 20211203
  19. DIPHENHYDRAMINE [Concomitant]
     Active Substance: DIPHENHYDRAMINE
     Indication: Premedication
     Dosage: 25 MG
     Dates: start: 20210609, end: 20210609
  20. DIPHENHYDRAMINE [Concomitant]
     Active Substance: DIPHENHYDRAMINE
     Dosage: 50 MG
     Dates: start: 20211203, end: 20211203
  21. IMMUNE GLOBULIN NOS [Concomitant]
     Active Substance: IMMUNE GLOBULIN NOS
     Dosage: 1 DF, MONTHLY
     Route: 042
  22. IMMUNE GLOBULIN NOS [Concomitant]
     Active Substance: IMMUNE GLOBULIN NOS
     Dosage: 1 DF, MONTHLY, DOSAGE INFORMATION UNAVAILABLE
     Route: 065
  23. METHYLPREDNISOLONE [Concomitant]
     Active Substance: METHYLPREDNISOLONE
     Indication: Premedication
     Dosage: 100 MG
     Dates: start: 20210609, end: 20210609
  24. METHYLPREDNISOLONE [Concomitant]
     Active Substance: METHYLPREDNISOLONE
     Dosage: 100 MG
     Dates: start: 20211203, end: 20211203
  25. PREDNISONE [Concomitant]
     Active Substance: PREDNISONE
     Dosage: 3 MG, DAILY
     Route: 065
  26. SYNTHROID [Concomitant]
     Active Substance: LEVOTHYROXINE SODIUM
     Dosage: 1 DF, DAILY, DOSAGE INFORMATION UNAVAILABLE
     Route: 065
  27. SYNTHROID [Concomitant]
     Active Substance: LEVOTHYROXINE SODIUM
     Dosage: 1 DF, 1X/DAY (DOSAGE INFORMATION UNAVAILABLE)
     Route: 065

REACTIONS (13)
  - Bladder pain [Unknown]
  - Lacrimation increased [Unknown]
  - Psychiatric symptom [Unknown]
  - Poor venous access [Unknown]
  - Yellow skin [Recovered/Resolved]
  - Blood pressure fluctuation [Unknown]
  - Abdominal pain [Not Recovered/Not Resolved]
  - Condition aggravated [Not Recovered/Not Resolved]
  - Maternal exposure during pregnancy [Unknown]
  - Off label use [Unknown]
  - Off label use [Unknown]
  - Intentional product use issue [Unknown]
  - Inappropriate schedule of product administration [Unknown]

NARRATIVE: CASE EVENT DATE: 20201126
